FAERS Safety Report 5787499-3 (Version None)
Quarter: 2008Q2

REPORT INFORMATION
  Report Type: 
  Country: None (occurrence: None)
  Receive Date: 20080625
  Receipt Date: 20071015
  Transmission Date: 20081010
  Serious: No
  Sender: FDA-Public Use
  Company Number: US-ASTRAZENECA-2007UW23907

PATIENT
  Age: 40 Year
  Sex: Female
  Weight: 50.8 kg

DRUGS (1)
  1. PULMICORT RESPULES [Suspect]
     Indication: EOSINOPHILIC OESOPHAGITIS
     Route: 055

REACTIONS (2)
  - INCREASED APPETITE [None]
  - WEIGHT INCREASED [None]
